FAERS Safety Report 12949645 (Version 1)
Quarter: 2016Q4

REPORT INFORMATION
  Report Type: Spontaneous
  Country: JP (occurrence: JP)
  Receive Date: 20161116
  Receipt Date: 20161116
  Transmission Date: 20170207
  Serious: Yes (Hospitalization)
  Sender: FDA-Public Use
  Company Number: JP-BRACCO-010639

PATIENT
  Age: 76 Year
  Sex: Female

DRUGS (20)
  1. URSODEOXYCHOLIC ACID [Concomitant]
     Active Substance: URSODIOL
  2. NEXIUM [Concomitant]
     Active Substance: ESOMEPRAZOLE MAGNESIUM
  3. MAGMITT [Concomitant]
     Active Substance: MAGNESIUM OXIDE
  4. NU-LOTAN [Concomitant]
     Active Substance: LOSARTAN POTASSIUM
  5. SIGMART [Concomitant]
     Active Substance: NICORANDIL
  6. ARTIST [Concomitant]
     Active Substance: CARVEDILOL
  7. FUROSEMIDE. [Concomitant]
     Active Substance: FUROSEMIDE
  8. CEFAZOLIN SODIUM. [Suspect]
     Active Substance: CEFAZOLIN SODIUM
     Indication: PYREXIA
     Route: 041
     Dates: start: 20160711, end: 20160711
  9. MIYA-BM [Concomitant]
     Active Substance: CLOSTRIDIUM BUTYRICUM SPORES STRAIN M-55
  10. AMBROXOL HYDROCHLORIDE [Concomitant]
     Active Substance: AMBROXOL HYDROCHLORIDE
  11. AMITIZA [Concomitant]
     Active Substance: LUBIPROSTONE
  12. OYPALOMIN [Suspect]
     Active Substance: IOPAMIDOL
     Indication: PERCUTANEOUS CORONARY INTERVENTION
     Route: 013
     Dates: start: 20160711, end: 20160711
  13. OYPALOMIN [Suspect]
     Active Substance: IOPAMIDOL
     Indication: ANGIOGRAM
     Route: 013
     Dates: start: 20160623, end: 20160623
  14. CEFAZOLIN SODIUM. [Suspect]
     Active Substance: CEFAZOLIN SODIUM
     Indication: PYREXIA
     Route: 041
     Dates: start: 20160707, end: 20160707
  15. SPIRONOLACTONE. [Concomitant]
     Active Substance: SPIRONOLACTONE
  16. IOPAMIRON [Suspect]
     Active Substance: IOPAMIDOL
     Indication: PERCUTANEOUS CORONARY INTERVENTION
     Route: 013
     Dates: start: 20160707, end: 20160707
  17. BAYASPIRIN [Concomitant]
     Active Substance: ASPIRIN
  18. PRASUGREL [Concomitant]
     Active Substance: PRASUGREL
  19. TOLVAPTAN [Concomitant]
     Active Substance: TOLVAPTAN
  20. CEFAZOLIN SODIUM. [Suspect]
     Active Substance: CEFAZOLIN SODIUM
     Indication: PYREXIA
     Route: 041
     Dates: start: 20160713, end: 20160715

REACTIONS (1)
  - Toxic epidermal necrolysis [Recovering/Resolving]

NARRATIVE: CASE EVENT DATE: 20160711
